FAERS Safety Report 24863792 (Version 1)
Quarter: 2025Q1

REPORT INFORMATION
  Report Type: Spontaneous
  Country: US (occurrence: US)
  Receive Date: 20250120
  Receipt Date: 20250120
  Transmission Date: 20250409
  Serious: No
  Sender: Phathom Pharmaceuticals
  Company Number: US-PHATHOM PHARMACEUTICALS INC.-2024PHT01017

PATIENT
  Age: 57 Year
  Sex: Female

DRUGS (2)
  1. VOQUEZNA [Suspect]
     Active Substance: VONOPRAZAN FUMARATE
     Indication: Gastrooesophageal reflux disease
     Dosage: 20 MG, 1X/DAY
     Route: 048
     Dates: start: 20240529, end: 2024
  2. BACLOFEN [Concomitant]
     Active Substance: BACLOFEN

REACTIONS (1)
  - Malaise [Recovering/Resolving]

NARRATIVE: CASE EVENT DATE: 20240101
